FAERS Safety Report 6712529-1 (Version None)
Quarter: 2010Q2

REPORT INFORMATION
  Report Type: 
  Country: None (occurrence: None)
  Receive Date: 20100506
  Receipt Date: 20100421
  Transmission Date: 20101027
  Serious: Yes (Life-Threatening, Hospitalization, Other)
  Sender: FDA-Public Use
  Company Number: US-BAYER-200939468NA

PATIENT
  Age: 18 Year
  Sex: Female
  Weight: 50 kg

DRUGS (7)
  1. YAZ [Suspect]
     Indication: ACNE
     Route: 048
     Dates: start: 20070829, end: 20071104
  2. YASMIN [Suspect]
     Indication: ACNE
     Route: 048
     Dates: start: 20070829, end: 20071104
  3. ADEROL [Concomitant]
     Route: 065
     Dates: start: 19910101, end: 20070101
  4. EFFEXOR XR [Concomitant]
     Route: 065
     Dates: start: 20010101
  5. CLONIDINE [Concomitant]
     Route: 065
     Dates: start: 20030101
  6. VIVANSE [Concomitant]
     Route: 065
     Dates: start: 20080101
  7. ADVIL [Concomitant]
     Route: 065

REACTIONS (1)
  - DEEP VEIN THROMBOSIS [None]
